FAERS Safety Report 16549142 (Version 1)
Quarter: 2019Q3

REPORT INFORMATION
  Report Type: Spontaneous
  Country: US (occurrence: US)
  Receive Date: 20190709
  Receipt Date: 20190709
  Transmission Date: 20191004
  Serious: No
  Sender: FDA-Public Use
  Company Number: US-TEVA-2019-US-1070472

PATIENT
  Age: 7 Year
  Sex: Female

DRUGS (4)
  1. METHYLPREDNISOLONE. [Suspect]
     Active Substance: METHYLPREDNISOLONE
     Indication: ENDOCRINE OPHTHALMOPATHY
  2. PREDNISONE. [Suspect]
     Active Substance: PREDNISONE
     Indication: EXOPHTHALMOS
     Dosage: 20 MILLIGRAM DAILY;
     Route: 065
  3. PREDNISONE. [Suspect]
     Active Substance: PREDNISONE
     Indication: ENDOCRINE OPHTHALMOPATHY
  4. METHYLPREDNISOLONE. [Suspect]
     Active Substance: METHYLPREDNISOLONE
     Indication: EXOPHTHALMOS
     Dosage: ONE DOSE WAS ADMINISTERED
     Route: 042

REACTIONS (1)
  - Drug ineffective [Unknown]
